FAERS Safety Report 9652464 (Version 3)
Quarter: 2013Q4

REPORT INFORMATION
  Report Type: Spontaneous
  Country: FR (occurrence: FR)
  Receive Date: 20131029
  Receipt Date: 20131113
  Transmission Date: 20140711
  Serious: Yes (Hospitalization)
  Sender: FDA-Public Use
  Company Number: FR-PFIZER INC-2013305538

PATIENT
  Age: 43 Year
  Sex: Female
  Weight: 48 kg

DRUGS (4)
  1. SOLU-MEDROL [Suspect]
     Indication: PREMEDICATION
     Dosage: 120 MG, SINGLE
     Route: 042
     Dates: start: 20131007, end: 20131007
  2. CARBOPLATIN ACTAVIS [Suspect]
     Indication: UTERINE CANCER
     Dosage: 535 MG, SINGLE
     Route: 042
     Dates: start: 20131007, end: 20131007
  3. PACLITAXEL EBEWE [Suspect]
     Indication: UTERINE CANCER
     Dosage: 255 MG, SINGLE
     Route: 042
     Dates: start: 20131007, end: 20131007
  4. ZOPHREN [Suspect]
     Indication: PREMEDICATION
     Dosage: 8 MG, SINGLE
     Route: 042
     Dates: start: 20131007, end: 20131007

REACTIONS (4)
  - Nausea [Recovered/Resolved]
  - Tachycardia [Recovered/Resolved]
  - Diarrhoea [Recovered/Resolved]
  - Abdominal pain [Recovered/Resolved]
